FAERS Safety Report 19143874 (Version 1)
Quarter: 2021Q2

REPORT INFORMATION
  Report Type: Spontaneous
  Country: FR (occurrence: FR)
  Receive Date: 20210416
  Receipt Date: 20210416
  Transmission Date: 20210717
  Serious: Yes (Hospitalization)
  Sender: FDA-Public Use
  Company Number: FR-TEVA-2021-FR-1900445

PATIENT
  Age: 52 Year
  Sex: Male
  Weight: 58 kg

DRUGS (7)
  1. SERESTA 50 MG, COMPRIME SECABLE [Concomitant]
     Active Substance: OXAZEPAM
     Dosage: SCORED
  2. VALACICLOVIR ARROW 500 MG, COMPRIME PELLICULE [Concomitant]
     Active Substance: VALACYCLOVIR HYDROCHLORIDE
  3. BACTRIM [Concomitant]
     Active Substance: SULFAMETHOXAZOLE\TRIMETHOPRIM
  4. LYRICA [Concomitant]
     Active Substance: PREGABALIN
  5. FLUDARABINE TEVA [Suspect]
     Active Substance: FLUDARABINE PHOSPHATE
     Indication: BONE MARROW CONDITIONING REGIMEN
     Dosage: 40.8MILLIGRAM
     Route: 042
     Dates: start: 20210113, end: 20210118
  6. KYMRIAH [Suspect]
     Active Substance: TISAGENLECLEUCEL
     Indication: HIGH GRADE B-CELL LYMPHOMA BURKITT-LIKE LYMPHOMA STAGE IV
     Dosage: 1.2MU
     Route: 042
     Dates: start: 20210119, end: 20210119
  7. ENDOXAN 500 MG, LYOPHILISAT POUR SOLUTION INJECTABLE [Suspect]
     Active Substance: CYCLOPHOSPHAMIDE
     Indication: BONE MARROW CONDITIONING REGIMEN
     Dosage: 420MILLIGRAM
     Route: 042
     Dates: start: 20210113, end: 20210118

REACTIONS (2)
  - Thrombocytopenia [Recovered/Resolved]
  - Cytokine release syndrome [Recovered/Resolved]

NARRATIVE: CASE EVENT DATE: 20210121
